FAERS Safety Report 6226437-6 (Version None)
Quarter: 2009Q2

REPORT INFORMATION
  Report Type: 
  Country: None (occurrence: None)
  Receive Date: 20090612
  Receipt Date: 20090608
  Transmission Date: 20091009
  Serious: Yes (Hospitalization)
  Sender: FDA-Public Use
  Company Number: US-JNJFOC-20090603146

PATIENT
  Sex: Female
  Weight: 69.4 kg

DRUGS (26)
  1. LEVAQUIN [Suspect]
     Indication: BRONCHITIS
     Route: 048
  2. AVONEX [Concomitant]
     Indication: MULTIPLE SCLEROSIS
     Route: 058
  3. BACLOFEN [Concomitant]
     Indication: MULTIPLE SCLEROSIS
     Route: 048
  4. ATENOLOL [Concomitant]
     Indication: HYPERTENSION
     Route: 048
  5. ALTACE [Concomitant]
     Indication: HYPERTENSION
     Route: 048
  6. TRAZODONE HCL [Concomitant]
     Indication: DEPRESSION
     Dosage: TOTAL DAILY DOSE OF 450 MG: 3 PILLS ONCE DAILY
     Route: 048
  7. RANEXA [Concomitant]
     Indication: MYASTHENIA GRAVIS
     Route: 048
  8. NITROGLYCERIN [Concomitant]
     Indication: CARDIAC FAILURE CONGESTIVE
     Dosage: AS NEEDED
     Route: 065
  9. IMDUR [Concomitant]
     Indication: CARDIAC FAILURE CONGESTIVE
     Route: 048
  10. ULTRAM ER [Concomitant]
     Indication: PAIN
     Dosage: AS NEEDED
     Route: 048
  11. LUNESTA [Concomitant]
     Indication: SLEEP DISORDER
     Route: 048
  12. KLONOPIN [Concomitant]
     Indication: ANXIETY
     Route: 048
  13. LASIX [Concomitant]
     Indication: CARDIAC FAILURE CONGESTIVE
     Route: 048
  14. KLOR-CON [Concomitant]
     Indication: MYASTHENIA GRAVIS
     Route: 048
  15. PROVIGIL [Concomitant]
     Indication: FATIGUE
     Route: 048
  16. CELLCEPT [Concomitant]
     Indication: MYASTHENIA GRAVIS
     Route: 048
  17. SINGULAIR [Concomitant]
     Indication: CHRONIC OBSTRUCTIVE PULMONARY DISEASE
     Route: 048
  18. XOPENEX [Concomitant]
     Indication: CHRONIC OBSTRUCTIVE PULMONARY DISEASE
     Route: 055
  19. ADVAIR DISKUS 500/50 [Concomitant]
     Indication: CHRONIC OBSTRUCTIVE PULMONARY DISEASE
     Route: 055
  20. BONIVA [Concomitant]
     Indication: OSTEOPOROSIS
     Route: 048
  21. BONIVA [Concomitant]
     Route: 065
  22. NASONEX [Concomitant]
     Indication: MULTIPLE ALLERGIES
     Route: 045
  23. CALCIUM WITH VITAMIN  D [Concomitant]
     Indication: NUTRITIONAL SUPPORT
     Route: 048
  24. LOVAZA [Concomitant]
     Indication: NUTRITIONAL SUPPORT
     Route: 048
  25. POTASSIUM CHLORIDE [Concomitant]
     Indication: NUTRITIONAL SUPPORT
     Route: 048
  26. ASPIRIN [Concomitant]
     Indication: CARDIAC DISORDER
     Route: 048

REACTIONS (2)
  - DYSPNOEA [None]
  - MYASTHENIA GRAVIS [None]
